FAERS Safety Report 18138985 (Version 1)
Quarter: 2020Q3

REPORT INFORMATION
  Report Type: Spontaneous
  Country: US (occurrence: US)
  Receive Date: 20200812
  Receipt Date: 20200812
  Transmission Date: 20201103
  Serious: No
  Sender: FDA-Public Use
  Company Number: US-BEH-2020121066

PATIENT
  Sex: Female

DRUGS (4)
  1. HAEGARDA [Suspect]
     Active Substance: HUMAN C1-ESTERASE INHIBITOR
     Indication: RHEUMATOID ARTHRITIS
     Dosage: 3000 INTERNATIONAL UNIT (6ML), BIW, EVERY 3?4 DAYS
     Route: 058
     Dates: start: 20200310
  2. HUMIRA [Concomitant]
     Active Substance: ADALIMUMAB
  3. DANAZOL. [Concomitant]
     Active Substance: DANAZOL
  4. HAEGARDA [Suspect]
     Active Substance: HUMAN C1-ESTERASE INHIBITOR
     Indication: PROPHYLAXIS

REACTIONS (3)
  - No adverse event [Unknown]
  - Weight decreased [Not Recovered/Not Resolved]
  - Product use in unapproved indication [Unknown]
